FAERS Safety Report 9630239 (Version 1)
Quarter: 2013Q4

REPORT INFORMATION
  Report Type: Spontaneous
  Country: US (occurrence: US)
  Receive Date: 20131017
  Receipt Date: 20131017
  Transmission Date: 20140711
  Serious: No
  Sender: FDA-Public Use
  Company Number: US-009507513-1310USA005476

PATIENT
  Sex: Male

DRUGS (2)
  1. NASONEX [Suspect]
     Indication: RHINITIS ALLERGIC
     Dosage: 50 MICROGRAM, TWO SPRAYS IN EACH NOSTRIL, ONCE DAILY
     Route: 055
  2. NASONEX [Suspect]
     Dosage: MORE THAN HIS PRESCRIBED DOSE
     Route: 055

REACTIONS (2)
  - Drug effect decreased [Unknown]
  - Overdose [Unknown]
